FAERS Safety Report 21970476 (Version 2)
Quarter: 2023Q1

REPORT INFORMATION
  Report Type: Spontaneous
  Country: RU (occurrence: RU)
  Receive Date: 20230209
  Receipt Date: 20230228
  Transmission Date: 20230417
  Serious: Yes (Other)
  Sender: FDA-Public Use
  Company Number: RU-NOVOPROD-1021134

PATIENT
  Sex: Female

DRUGS (1)
  1. FIASP [Suspect]
     Active Substance: INSULIN ASPART
     Indication: Product used for unknown indication
     Dosage: UNK

REACTIONS (4)
  - Device leakage [Unknown]
  - Product storage error [Unknown]
  - Multiple use of single-use product [Unknown]
  - Liquid product physical issue [Unknown]
